FAERS Safety Report 24943463 (Version 2)
Quarter: 2025Q2

REPORT INFORMATION
  Report Type: Spontaneous
  Country: US (occurrence: US)
  Receive Date: 20250207
  Receipt Date: 20250425
  Transmission Date: 20250717
  Serious: No
  Sender: TAKEDA
  Company Number: US-TAKEDA-2025TUS013640

PATIENT
  Sex: Female

DRUGS (4)
  1. TAKHZYRO [Suspect]
     Active Substance: LANADELUMAB-FLYO
     Indication: Immune system disorder
     Dosage: UNK UNK, Q2WEEKS
  2. TAKHZYRO [Suspect]
     Active Substance: LANADELUMAB-FLYO
     Dosage: 300 MILLIGRAM, 2/WEEK
  3. ICATIBANT [Suspect]
     Active Substance: ICATIBANT ACETATE
     Indication: Product used for unknown indication
  4. ICATIBANT [Suspect]
     Active Substance: ICATIBANT ACETATE

REACTIONS (3)
  - Nausea [Unknown]
  - Therapeutic product effect delayed [Unknown]
  - Hereditary angioedema [Unknown]
